FAERS Safety Report 7493447-0 (Version None)
Quarter: 2011Q2

REPORT INFORMATION
  Report Type: 
  Country: None (occurrence: None)
  Receive Date: 20110520
  Receipt Date: 20110504
  Transmission Date: 20111010
  Serious: No
  Sender: FDA-Public Use
  Company Number: US-B.I. PHARMACEUTICALS,INC./RIDGEFIELD-2011-BP-06522BP

PATIENT
  Sex: Male

DRUGS (12)
  1. PRADAXA [Suspect]
     Indication: HEART RATE IRREGULAR
  2. TERAZOSIN HCL [Concomitant]
     Indication: PROSTATOMEGALY
  3. VITAMINS [Concomitant]
     Indication: PROPHYLAXIS
  4. METOPROLOL TARTRATE [Concomitant]
  5. FISH OIL [Concomitant]
     Indication: PROPHYLAXIS
  6. PRADAXA [Suspect]
     Indication: ATRIAL FIBRILLATION
     Dosage: 300 MG
     Route: 048
     Dates: start: 20110101
  7. POTASSIUM GLUCONATE TAB [Concomitant]
  8. OMEPRAZOLE [Concomitant]
     Indication: GASTROOESOPHAGEAL REFLUX DISEASE
  9. PRADAXA [Suspect]
     Indication: ANTICOAGULANT THERAPY
  10. SIMVASTATIN [Concomitant]
     Indication: BLOOD CHOLESTEROL INCREASED
  11. STOOL SOFTENER DOCUSATE SODIUM [Concomitant]
  12. CITRUCEL [Concomitant]

REACTIONS (3)
  - DIZZINESS [None]
  - CARDIOVERSION [None]
  - GAIT DISTURBANCE [None]
